FAERS Safety Report 4285317-6 (Version None)
Quarter: 2004Q1

REPORT INFORMATION
  Report Type: 
  Country: None (occurrence: None)
  Receive Date: 20040202
  Receipt Date: 20040122
  Transmission Date: 20041129
  Serious: Yes (Death)
  Sender: FDA-Public Use
  Company Number: 2004196012BR

PATIENT
  Age: 73 Year
  Sex: Male

DRUGS (1)
  1. XALATAN [Suspect]
     Indication: GLAUCOMA
     Dosage: 1GTT, QD, OPHTHALMIC
     Route: 047
     Dates: start: 20010816

REACTIONS (1)
  - BILIARY NEOPLASM [None]
